FAERS Safety Report 9048549 (Version 1)
Quarter: 2013Q1

REPORT INFORMATION
  Report Type: Spontaneous
  Country: US (occurrence: None)
  Receive Date: 20130130
  Receipt Date: 20130130
  Transmission Date: 20140127
  Serious: Yes (Hospitalization)
  Sender: FDA-Public Use
  Company Number: None

PATIENT
  Age: 90 Year
  Sex: Female
  Weight: 84 kg

DRUGS (10)
  1. COUMADIN [Suspect]
     Indication: ATRIAL FIBRILLATION
     Dosage: CHRONIC
     Route: 048
  2. SEPTRA DS [Suspect]
     Indication: CELLULITIS
     Dosage: 1 TABLET RECENT
     Route: 048
  3. ASA [Suspect]
     Route: 048
  4. PROTONIX [Concomitant]
  5. COZAAR [Concomitant]
  6. LUMIGAN [Concomitant]
  7. LIPITOR [Concomitant]
  8. TOPROL XL [Concomitant]
  9. CARDIZEM CD [Concomitant]
  10. ASA [Concomitant]

REACTIONS (7)
  - Gastrointestinal haemorrhage [None]
  - Coagulopathy [None]
  - International normalised ratio increased [None]
  - Drug interaction [None]
  - Haemorrhagic anaemia [None]
  - Diverticulum [None]
  - Gastrointestinal arteriovenous malformation [None]
